FAERS Safety Report 8377479-6 (Version None)
Quarter: 2012Q2

REPORT INFORMATION
  Report Type: 
  Country: None (occurrence: None)
  Receive Date: 20120522
  Receipt Date: 20110909
  Transmission Date: 20120825
  Serious: No
  Sender: FDA-Public Use
  Company Number: US-ASTRAZENECA-2011SE22666

PATIENT
  Age: 56 Year
  Sex: Female

DRUGS (5)
  1. BUPROPION HCL [Suspect]
     Route: 065
  2. LAMOTRIGINE [Suspect]
     Route: 065
  3. LAMOTRIGINE [Suspect]
     Route: 065
  4. OMEPRAZOLE [Suspect]
     Route: 048
     Dates: end: 20110501
  5. SEROQUEL [Suspect]
     Route: 048

REACTIONS (23)
  - SOCIAL AVOIDANT BEHAVIOUR [None]
  - MEMORY IMPAIRMENT [None]
  - NERVOUSNESS [None]
  - EMOTIONAL DISORDER [None]
  - COUGH [None]
  - THERAPEUTIC RESPONSE UNEXPECTED [None]
  - IMPAIRED WORK ABILITY [None]
  - VOCAL CORD DISORDER [None]
  - MENTAL IMPAIRMENT [None]
  - HYPOAESTHESIA ORAL [None]
  - CONSTIPATION [None]
  - BIPOLAR I DISORDER [None]
  - CHOKING SENSATION [None]
  - FEELING ABNORMAL [None]
  - DISORIENTATION [None]
  - COGNITIVE DISORDER [None]
  - ASTHMA [None]
  - DYSARTHRIA [None]
  - SEDATION [None]
  - OESOPHAGEAL SPASM [None]
  - UPPER-AIRWAY COUGH SYNDROME [None]
  - OESOPHAGEAL IRRITATION [None]
  - DEPRESSION [None]
